FAERS Safety Report 12084147 (Version 1)
Quarter: 2016Q1

REPORT INFORMATION
  Report Type: Spontaneous
  Country: US (occurrence: None)
  Receive Date: 20160216
  Receipt Date: 20160216
  Transmission Date: 20160526
  Serious: Yes (Other)
  Sender: FDA-Public Use
  Company Number: None

PATIENT
  Sex: Female
  Weight: 44.45 kg

DRUGS (1)
  1. FENTANYL 75 MCG [Suspect]
     Active Substance: FENTANYL
     Dosage: 2010 FOR APPROXIMATELY 3 WEEKS
     Dates: start: 2010

REACTIONS (4)
  - Drug ineffective [None]
  - Pain [None]
  - Product substitution issue [None]
  - Product adhesion issue [None]

NARRATIVE: CASE EVENT DATE: 2010
